FAERS Safety Report 17083996 (Version 1)
Quarter: 2019Q4

REPORT INFORMATION
  Report Type: Spontaneous
  Country: JP (occurrence: JP)
  Receive Date: 20191127
  Receipt Date: 20191127
  Transmission Date: 20200122
  Serious: Yes (Other)
  Sender: FDA-Public Use
  Company Number: JP-ASTRAZENECA-2019SF68084

PATIENT
  Sex: Female

DRUGS (4)
  1. FERROMIA [Suspect]
     Active Substance: SODIUM FERROUS CITRATE
     Dosage: DOSE UNKNOWN
     Route: 065
  2. LYNPARZA [Suspect]
     Active Substance: OLAPARIB
     Indication: OVARIAN CANCER
     Route: 048
     Dates: start: 20191004, end: 20191119
  3. LYRICA [Suspect]
     Active Substance: PREGABALIN
     Dosage: DOSE UNKNOWN
     Route: 065
  4. METHYCOBAL [Suspect]
     Active Substance: METHYLCOBALAMIN
     Dosage: DOSE UNKNOWN
     Route: 065

REACTIONS (1)
  - Hepatic function abnormal [Not Recovered/Not Resolved]

NARRATIVE: CASE EVENT DATE: 20191119
